FAERS Safety Report 9110981 (Version 1)
Quarter: 2013Q1

REPORT INFORMATION
  Report Type: Spontaneous
  Country: US (occurrence: US)
  Receive Date: 20130219
  Receipt Date: 20130219
  Transmission Date: 20140127
  Serious: No
  Sender: FDA-Public Use
  Company Number: US-BRISTOL-MYERS SQUIBB COMPANY-16914665

PATIENT
  Age: 35 Year
  Sex: Female
  Weight: 63.04 kg

DRUGS (12)
  1. ORENCIA [Suspect]
     Indication: RHEUMATOID ARTHRITIS
     Dosage: LAST INFUSION: 01AUG12?INF DTS:1AUG12,29AG12
     Route: 042
     Dates: start: 20120718
  2. BYSTOLIC [Concomitant]
  3. LISINOPRIL [Concomitant]
  4. AMLODIPINE [Concomitant]
  5. NITRO PATCH [Concomitant]
  6. LEFLUNOMIDE [Concomitant]
  7. SOMA [Concomitant]
  8. CARISOPRODOL [Concomitant]
  9. HYDROCODONE + ACETAMINOPHEN [Concomitant]
  10. LEXAPRO [Concomitant]
  11. LORAZEPAM [Concomitant]
  12. PREDNISONE [Concomitant]

REACTIONS (2)
  - Headache [Not Recovered/Not Resolved]
  - Rheumatoid arthritis [Not Recovered/Not Resolved]
